FAERS Safety Report 15366448 (Version 1)
Quarter: 2018Q3

REPORT INFORMATION
  Report Type: Spontaneous
  Country: US (occurrence: US)
  Receive Date: 20180831
  Receipt Date: 20180831
  Transmission Date: 20181010
  Serious: Yes (Other)
  Sender: FDA-Public Use
  Company Number: None

PATIENT
  Age: 75 Year
  Sex: Female
  Weight: 62.6 kg

DRUGS (5)
  1. TIMOLOL MALEATE OP 0.25% [Concomitant]
  2. BRIMONIDINE TARTRATE OPHTHALMIC SOLUTION 0.15% (15ML DISPENSER) [Suspect]
     Active Substance: BRIMONIDINE TARTRATE
     Indication: GLAUCOMA
     Dosage: ?          QUANTITY:AKING OR;?
     Dates: start: 20180709, end: 20180816
  3. MULTIPLE VITAMIN [Concomitant]
     Active Substance: VITAMINS
  4. AREDS 2 [Concomitant]
     Active Substance: MINERALS\VITAMINS
  5. VITAMIN C [Concomitant]
     Active Substance: ASCORBIC ACID

REACTIONS (4)
  - Instillation site pain [None]
  - Instillation site erythema [None]
  - Insomnia [None]
  - Eyelid oedema [None]

NARRATIVE: CASE EVENT DATE: 20180817
